FAERS Safety Report 5738320-0 (Version None)
Quarter: 2008Q2

REPORT INFORMATION
  Report Type: 
  Country: None (occurrence: None)
  Receive Date: 20080513
  Receipt Date: 20080430
  Transmission Date: 20081010
  Serious: Yes (Disabling, Other)
  Sender: FDA-Public Use
  Company Number: MEDI-0006778

PATIENT
  Age: 24 Month
  Sex: Male

DRUGS (5)
  1. SYNAGIS [Suspect]
     Dates: start: 20071101, end: 20080301
  2. SYNAGIS [Suspect]
  3. SYNAGIS [Suspect]
  4. SYNAGIS [Suspect]
  5. INFLUENZA INJECTION [Concomitant]

REACTIONS (3)
  - APHASIA [None]
  - AUTISM [None]
  - COGNITIVE DISORDER [None]
